FAERS Safety Report 24438278 (Version 1)
Quarter: 2024Q4

REPORT INFORMATION
  Report Type: Spontaneous
  Country: US (occurrence: US)
  Receive Date: 20241015
  Receipt Date: 20241015
  Transmission Date: 20250115
  Serious: No
  Sender: BAYER HEALTHCARE PHARMACEUTICALS INC.
  Company Number: US-BAYER-2024A146166

PATIENT
  Age: 41 Year
  Sex: Female

DRUGS (1)
  1. MIRENA [Suspect]
     Active Substance: LEVONORGESTREL
     Indication: Intrauterine contraception
     Dosage: 20?G/DAY
     Route: 015
     Dates: start: 201704, end: 202407

REACTIONS (1)
  - Device expulsion [Recovered/Resolved]

NARRATIVE: CASE EVENT DATE: 20240701
